FAERS Safety Report 13668874 (Version 2)
Quarter: 2017Q2

REPORT INFORMATION
  Report Type: Spontaneous
  Country: GB (occurrence: GB)
  Receive Date: 20170620
  Receipt Date: 20170626
  Transmission Date: 20170830
  Serious: Yes (Life-Threatening, Hospitalization, Other)
  Sender: FDA-Public Use
  Company Number: GB-PFIZER INC-2017266436

PATIENT
  Age: 45 Year
  Sex: Female

DRUGS (2)
  1. IBUPROFEN. [Suspect]
     Active Substance: IBUPROFEN
     Indication: INTENTIONAL PRODUCT MISUSE
     Dosage: 28 G, DAILY
     Route: 048
  2. NUROFEN PLUS [Suspect]
     Active Substance: CODEINE PHOSPHATE\IBUPROFEN
     Dosage: IBUPROFEN 600 MG, CODEINE PHOSPHATE 12.8 MG UNK, DAILY

REACTIONS (5)
  - Hypokalaemia [Unknown]
  - Intentional overdose [Unknown]
  - Drug use disorder [Unknown]
  - Poisoning deliberate [Unknown]
  - Renal tubular acidosis [Unknown]
